FAERS Safety Report 11295911 (Version 1)
Quarter: 2015Q3

REPORT INFORMATION
  Report Type: Spontaneous
  Country: US (occurrence: None)
  Receive Date: 20150722
  Receipt Date: 20150722
  Transmission Date: 20151125
  Serious: Yes (Life-Threatening, Hospitalization)
  Sender: FDA-Public Use
  Company Number: None

PATIENT
  Age: 65 Year
  Sex: Male
  Weight: 76 kg

DRUGS (1)
  1. ALLOPURINOL. [Suspect]
     Active Substance: ALLOPURINOL
     Route: 048
     Dates: start: 20120106, end: 20120203

REACTIONS (16)
  - Rash [None]
  - Stevens-Johnson syndrome [None]
  - Pyrexia [None]
  - Septic shock [None]
  - Renal tubular necrosis [None]
  - Renal impairment [None]
  - Dysphagia [None]
  - Eye disorder [None]
  - Skin lesion [None]
  - Oral disorder [None]
  - Drug ineffective [None]
  - Toxicity to various agents [None]
  - Toxic epidermal necrolysis [None]
  - Respiratory disorder [None]
  - Oropharyngeal pain [None]
  - Therapy change [None]

NARRATIVE: CASE EVENT DATE: 20120203
